FAERS Safety Report 11555971 (Version 1)
Quarter: 2015Q3

REPORT INFORMATION
  Report Type: Spontaneous
  Country: US (occurrence: US)
  Receive Date: 20150925
  Receipt Date: 20150925
  Transmission Date: 20151125
  Serious: Yes (Hospitalization)
  Sender: FDA-Public Use
  Company Number: US-UNITED THERAPEUTICS-UNT-2015-011542

PATIENT
  Age: 41 Year
  Sex: Female
  Weight: 71.34 kg

DRUGS (2)
  1. COUMADIN [Concomitant]
     Active Substance: WARFARIN SODIUM
     Indication: PRODUCT USED FOR UNKNOWN INDICATION
  2. REMODULIN [Suspect]
     Active Substance: TREPROSTINIL
     Indication: PULMONARY HYPERTENSION
     Dosage: 0.049 ?G/KG, CONTINUING
     Route: 058
     Dates: start: 20150216

REACTIONS (12)
  - Vomiting [Not Recovered/Not Resolved]
  - Therapy cessation [Unknown]
  - Treatment noncompliance [Unknown]
  - Diarrhoea [Unknown]
  - Dehydration [Unknown]
  - Infusion site pain [Unknown]
  - Nausea [Not Recovered/Not Resolved]
  - Syncope [Unknown]
  - Gastrooesophageal reflux disease [Not Recovered/Not Resolved]
  - Thrombosis in device [Unknown]
  - Hyperhidrosis [Unknown]
  - Pain in jaw [Unknown]

NARRATIVE: CASE EVENT DATE: 201509
